FAERS Safety Report 6666750-1 (Version None)
Quarter: 2010Q2

REPORT INFORMATION
  Report Type: 
  Country: None (occurrence: None)
  Receive Date: 20100405
  Receipt Date: 20100322
  Transmission Date: 20101027
  Serious: Yes (Other)
  Sender: FDA-Public Use
  Company Number: GB-RANBAXY-2010RR-32812

PATIENT
  Age: 13 Year
  Sex: Male

DRUGS (10)
  1. ACYCLOVIR SODIUM [Suspect]
     Indication: ENCEPHALITIS VIRAL
     Dosage: 400 MG, QID
     Route: 048
  2. ACYCLOVIR SODIUM [Suspect]
     Indication: MENINGITIS BACTERIAL
  3. ACYCLOVIR SODIUM [Suspect]
     Dosage: 500 MG, TID
     Route: 042
  4. ACYCLOVIR SODIUM [Suspect]
  5. ACYCLOVIR SODIUM [Suspect]
     Dosage: 750 MG, TID
     Route: 042
  6. ACYCLOVIR SODIUM [Suspect]
  7. FOSCARNET SODIUM [Suspect]
     Dosage: 2.5 MG, TID
  8. CEFOTAXIME [Concomitant]
  9. DEXAMETHASONE [Concomitant]
  10. SODIUM VALPROATE [Concomitant]

REACTIONS (1)
  - DRUG INEFFECTIVE [None]
